FAERS Safety Report 8030007-7 (Version None)
Quarter: 2012Q1

REPORT INFORMATION
  Report Type: 
  Country: None (occurrence: None)
  Receive Date: 20120106
  Receipt Date: 20120106
  Transmission Date: 20120608
  Serious: No
  Sender: FDA-Public Use
  Company Number: None

PATIENT
  Age: 81 Year
  Sex: Male
  Weight: 89.77 kg

DRUGS (1)
  1. DABIGATRAN [Suspect]
     Dosage: 150 MG BID PO
     Route: 048
     Dates: start: 20111208, end: 20111214

REACTIONS (2)
  - VOMITING [None]
  - NAUSEA [None]
